FAERS Safety Report 18560199 (Version 1)
Quarter: 2020Q4

REPORT INFORMATION
  Report Type: Spontaneous
  Country: US (occurrence: US)
  Receive Date: 20201130
  Receipt Date: 20201130
  Transmission Date: 20210114
  Serious: No
  Sender: FDA-Public Use
  Company Number: US-PFIZER INC-2020468785

PATIENT
  Age: 56 Year
  Sex: Female
  Weight: 117.93 kg

DRUGS (3)
  1. MISOPROSTOL. [Suspect]
     Active Substance: MISOPROSTOL
     Indication: ABDOMINAL DISCOMFORT
     Dosage: 200 MG, 3X/DAY
  2. MISOPROSTOL. [Suspect]
     Active Substance: MISOPROSTOL
     Dosage: 200 MG, 2X/DAY
  3. DICLOFENAC [Concomitant]
     Active Substance: DICLOFENAC

REACTIONS (4)
  - Off label use [Unknown]
  - Blood pressure increased [Unknown]
  - Intentional product misuse [Unknown]
  - Prescribed overdose [Unknown]
